FAERS Safety Report 8377257-8 (Version None)
Quarter: 2012Q1

REPORT INFORMATION
  Report Type: 
  Country: None (occurrence: None)
  Receive Date: 20120323
  Receipt Date: 20110323
  Transmission Date: 20120608
  Serious: Yes (Other)
  Sender: FDA-Public Use
  Company Number: 163-21880-11033028

PATIENT
  Age: 74 Year
  Sex: Female

DRUGS (4)
  1. BACTRIM [Concomitant]
  2. REVLIMID [Suspect]
     Indication: MULTIPLE MYELOMA
     Dosage: 25 MG, QD X 3 WEEKS, PO
     Route: 048
     Dates: start: 20110124
  3. ACYCLOVIR [Concomitant]
  4. DEXAMETHASONE [Concomitant]

REACTIONS (1)
  - NEUROPATHY PERIPHERAL [None]
